FAERS Safety Report 6534016-6 (Version None)
Quarter: 2010Q1

REPORT INFORMATION
  Report Type: 
  Country: None (occurrence: None)
  Receive Date: 20100112
  Receipt Date: 20100104
  Transmission Date: 20100710
  Serious: Yes (Hospitalization)
  Sender: FDA-Public Use
  Company Number: FR-ROCHE-677573

PATIENT
  Sex: Male

DRUGS (17)
  1. TAMIFLU [Suspect]
     Indication: DRUG USE FOR UNKNOWN INDICATION
     Route: 048
     Dates: start: 20091110, end: 20091114
  2. ACETAMINOPHEN AND CODEINE PHOSPHATE [Suspect]
     Indication: DRUG USE FOR UNKNOWN INDICATION
     Route: 048
     Dates: start: 20091114, end: 20091114
  3. ETHYL ALCOHOL [Suspect]
     Indication: DRUG USE FOR UNKNOWN INDICATION
     Route: 048
     Dates: start: 20091114, end: 20091114
  4. BIPRETERAX [Concomitant]
     Route: 048
  5. VERPAMIL [Concomitant]
     Route: 048
  6. SYMBICORT [Concomitant]
     Route: 055
  7. LAROXYL [Concomitant]
     Route: 048
  8. STILNOX [Concomitant]
     Route: 048
     Dates: end: 20091114
  9. CELECTOL [Concomitant]
     Route: 048
  10. DEPAKOTE [Concomitant]
     Route: 048
     Dates: end: 20091114
  11. ELISOR [Concomitant]
     Route: 048
  12. OMIX [Concomitant]
     Dosage: NAME RPTD AS ^OMIX LP^
     Route: 048
  13. VASTAREL [Concomitant]
     Route: 048
     Dates: end: 20091116
  14. TERCIAN [Concomitant]
     Route: 048
  15. TEGRETOL [Concomitant]
     Route: 048
  16. ATARAX [Concomitant]
     Route: 048
  17. TANAKAN [Concomitant]

REACTIONS (3)
  - AGGRESSION [None]
  - CONFUSIONAL STATE [None]
  - DISORIENTATION [None]
